FAERS Safety Report 8548485-3 (Version None)
Quarter: 2012Q3

REPORT INFORMATION
  Report Type: 
  Country: None (occurrence: None)
  Receive Date: 20120730
  Receipt Date: 20120718
  Transmission Date: 20120928
  Serious: Yes (Hospitalization)
  Sender: FDA-Public Use
  Company Number: FR-VERTEX PHARMACEUTICALS INC.-000000000000001236

PATIENT
  Sex: Male

DRUGS (4)
  1. INCIVO [Suspect]
     Indication: HEPATITIS C
     Dosage: DOSAGE FORM: TABLET
     Route: 048
     Dates: start: 20120102, end: 20120325
  2. VIRAFERONPEG [Concomitant]
     Indication: HEPATITIS C
     Dosage: 100MCG
     Route: 058
     Dates: start: 20120102
  3. FRAXODI [Concomitant]
     Indication: PORTAL VEIN THROMBOSIS
     Dosage: DOSAGE FORM: INJECTION, 400-0-600MG
     Route: 058
     Dates: start: 20120307
  4. REBETOL [Concomitant]
     Indication: HEPATITIS C
     Dosage: 400-0-600MG
     Route: 048
     Dates: start: 20120102

REACTIONS (2)
  - ECZEMA [None]
  - PRURITUS [None]
